FAERS Safety Report 18168714 (Version 22)
Quarter: 2023Q2

REPORT INFORMATION
  Report Type: Report from Study
  Country: DE (occurrence: DE)
  Receive Date: 20200819
  Receipt Date: 20230630
  Transmission Date: 20230721
  Serious: Yes (Life-Threatening, Hospitalization)
  Sender: FDA-Public Use
  Company Number: NVSC2020DE107508

PATIENT
  Age: 51 Year
  Sex: Female
  Weight: 67 kg

DRUGS (32)
  1. MESNA [Suspect]
     Active Substance: MESNA
     Indication: B-cell lymphoma refractory
     Dosage: 1750 MG, ONCE
     Route: 042
     Dates: start: 20200326
  2. IFOSFAMIDE [Suspect]
     Active Substance: IFOSFAMIDE
     Indication: B-cell lymphoma refractory
     Dosage: 7000 MG, CONTINUOUS INFUSION 24H
     Route: 042
     Dates: start: 20200326
  3. ETOPOSIDE [Suspect]
     Active Substance: ETOPOSIDE
     Indication: B-cell lymphoma refractory
     Dosage: 525 MG, QD
     Route: 042
     Dates: start: 20200325
  4. RITUXIMAB [Suspect]
     Active Substance: RITUXIMAB
     Indication: B-cell lymphoma recurrent
     Dosage: 667 MG, ONCE
     Route: 042
     Dates: start: 20200209
  5. CARBOPLATIN [Suspect]
     Active Substance: CARBOPLATIN
     Indication: B-cell lymphoma refractory
     Dosage: 400 MG, ONCE
     Route: 042
     Dates: start: 20200303
  6. CYTARABINE [Suspect]
     Active Substance: CYTARABINE
     Indication: B-cell lymphoma refractory
     Dosage: 7120 MG, BID
     Route: 042
     Dates: start: 20200211
  7. CISPLATIN [Suspect]
     Active Substance: CISPLATIN
     Indication: B-cell lymphoma refractory
     Dosage: 178 MG, CONTINUOUS INFUSION 24H
     Route: 042
     Dates: start: 20200210
  8. ALLOPURINOL [Concomitant]
     Active Substance: ALLOPURINOL
     Indication: Prophylaxis
     Dosage: UNK
     Route: 065
     Dates: start: 20200421, end: 20200429
  9. ALLOPURINOL [Concomitant]
     Active Substance: ALLOPURINOL
     Indication: Dialysis
     Dosage: UNK
     Route: 065
     Dates: end: 20200705
  10. ALLOPURINOL [Concomitant]
     Active Substance: ALLOPURINOL
     Dosage: UNK
     Route: 065
     Dates: start: 20200430, end: 20200511
  11. ALLOPURINOL [Concomitant]
     Active Substance: ALLOPURINOL
     Dosage: UNK
     Route: 065
     Dates: start: 20200512, end: 20200523
  12. HYDROMORPHONE [Concomitant]
     Active Substance: HYDROMORPHONE
     Indication: Abdominal pain
     Dosage: UNK
     Route: 065
     Dates: end: 20200705
  13. MIRTAZAPINE [Concomitant]
     Active Substance: MIRTAZAPINE
     Indication: Prophylaxis
     Dosage: UNK
     Route: 065
     Dates: end: 20200705
  14. PANTOZOL [Concomitant]
     Active Substance: PANTOPRAZOLE SODIUM
     Indication: Gastritis prophylaxis
     Dosage: UNK
     Route: 065
     Dates: end: 20200705
  15. PREGABALIN [Concomitant]
     Active Substance: PREGABALIN
     Indication: Rheumatoid arthritis
     Dosage: UNK
     Route: 065
     Dates: end: 20200705
  16. TORSEMIDE [Concomitant]
     Active Substance: TORSEMIDE
     Indication: Prophylaxis
     Dosage: UNK
     Route: 065
     Dates: end: 20200705
  17. ZOLPIDEM [Concomitant]
     Active Substance: ZOLPIDEM TARTRATE
     Indication: Sleep disorder
     Dosage: UNK
     Route: 065
     Dates: end: 20200705
  18. COTRIM [Concomitant]
     Active Substance: SULFAMETHOXAZOLE\TRIMETHOPRIM
     Indication: Antibiotic prophylaxis
     Dosage: UNK
     Route: 065
     Dates: start: 2019, end: 20200705
  19. ACYCLOVIR [Concomitant]
     Active Substance: ACYCLOVIR
     Indication: Antiviral prophylaxis
     Dosage: UNK
     Route: 065
     Dates: start: 20200122, end: 20200705
  20. AMPHO-MORONAL [Concomitant]
     Active Substance: AMPHOTERICIN B
     Indication: Prophylaxis
     Dosage: UNK
     Route: 065
     Dates: start: 20200122, end: 20200705
  21. BETAISODONA [Concomitant]
     Active Substance: POVIDONE-IODINE
     Indication: Infection prophylaxis
     Dosage: UNK
     Route: 065
     Dates: start: 20200122, end: 20200705
  22. TAVOR [Concomitant]
     Indication: Prophylaxis
     Dosage: UNK
     Route: 065
     Dates: start: 20200128, end: 20200705
  23. FEBUXOSTAT [Concomitant]
     Active Substance: FEBUXOSTAT
     Indication: Prophylaxis
     Dosage: UNK
     Route: 065
     Dates: start: 20200216, end: 20200705
  24. FUROSEMIDE [Concomitant]
     Active Substance: FUROSEMIDE
     Indication: Fluid retention
     Dosage: UNK
     Route: 065
     Dates: start: 20200420, end: 20200420
  25. FUROSEMIDE [Concomitant]
     Active Substance: FUROSEMIDE
     Dosage: UNK
     Route: 065
     Dates: start: 20200426, end: 20200426
  26. FUROSEMIDE [Concomitant]
     Active Substance: FUROSEMIDE
     Dosage: UNK
     Route: 065
     Dates: start: 20200427, end: 20200427
  27. MORPHINE [Concomitant]
     Active Substance: MORPHINE
     Indication: Abdominal pain
     Dosage: UNK
     Route: 065
     Dates: start: 20200420, end: 20200421
  28. POLATUZUMAB VEDOTIN [Concomitant]
     Active Substance: POLATUZUMAB VEDOTIN
     Indication: Chemotherapy
     Dosage: 135 MG ONCE
     Route: 065
     Dates: start: 20200429, end: 20200429
  29. BENDAMUSTINE [Concomitant]
     Active Substance: BENDAMUSTINE
     Indication: Chemotherapy
     Dosage: 252 MG, QD (EVERYDAY)
     Route: 065
     Dates: start: 20200425
  30. ZOFRAN [Concomitant]
     Active Substance: ONDANSETRON HYDROCHLORIDE
     Indication: Prophylaxis of nausea and vomiting
     Dosage: UNK
     Route: 065
     Dates: start: 20200425, end: 20200427
  31. FILGRASTIM [Concomitant]
     Active Substance: FILGRASTIM
     Indication: Prophylaxis
     Dosage: UNK
     Route: 065
     Dates: start: 20200505, end: 20200508
  32. ZOPICLONE [Concomitant]
     Active Substance: ZOPICLONE
     Indication: Prophylaxis
     Dosage: UNK
     Route: 065
     Dates: start: 20200506, end: 20200509

REACTIONS (5)
  - Pneumonia [Recovered/Resolved]
  - Anaemia [Recovered/Resolved]
  - Staphylococcal sepsis [Recovered/Resolved]
  - Acute kidney injury [Recovered/Resolved with Sequelae]
  - Blood creatinine increased [Recovered/Resolved with Sequelae]

NARRATIVE: CASE EVENT DATE: 20200420
